FAERS Safety Report 7308137-4 (Version None)
Quarter: 2011Q1

REPORT INFORMATION
  Report Type: 
  Country: None (occurrence: None)
  Receive Date: 20110210
  Receipt Date: 20110127
  Transmission Date: 20110831
  Serious: Yes (Other)
  Sender: FDA-Public Use
  Company Number: ACO_21627_2011

PATIENT
  Age: 34 Year
  Sex: Female

DRUGS (12)
  1. BENADRYL [Concomitant]
  2. VICODIN [Concomitant]
  3. REBIF [Suspect]
     Indication: PRODUCT USED FOR UNKNOWN INDICATION
  4. COQ10 (UBIDECARENONE) [Concomitant]
  5. VESICARE [Concomitant]
  6. FISH OIL (FISH OIL) [Concomitant]
  7. LYRICA [Concomitant]
  8. VENTOLIN HFA (SALBUTAMOL SULFATE) [Concomitant]
  9. AMPYRA [Suspect]
     Indication: PRODUCT USED FOR UNKNOWN INDICATION
     Dosage: 10 MG, Q 12 HRS, ORAL
     Route: 048
     Dates: start: 20100824
  10. METHYLPREDNISOLONE 4MG TAB [Concomitant]
  11. CYMBALTA [Concomitant]
  12. VITAMIN E [Concomitant]

REACTIONS (9)
  - DYSPNOEA [None]
  - DIZZINESS [None]
  - URINARY TRACT INFECTION [None]
  - WEIGHT FLUCTUATION [None]
  - DRUG INTOLERANCE [None]
  - CONVULSION [None]
  - DEVICE RELATED INFECTION [None]
  - SYNCOPE [None]
  - TREMOR [None]
